FAERS Safety Report 6702848-7 (Version None)
Quarter: 2010Q2

REPORT INFORMATION
  Report Type: 
  Country: None (occurrence: None)
  Receive Date: 20100429
  Receipt Date: 20100429
  Transmission Date: 20101027
  Serious: Yes (Life-Threatening, Hospitalization)
  Sender: FDA-Public Use
  Company Number: None

PATIENT
  Age: 29 Year
  Sex: Female
  Weight: 96.1626 kg

DRUGS (1)
  1. JUNEL FE 1.5/30 [Suspect]
     Indication: UTERINE LEIOMYOMA
     Dosage: 1 TABLET ONCE DAILY PO
     Route: 048
     Dates: start: 20091108, end: 20100126

REACTIONS (2)
  - DEEP VEIN THROMBOSIS [None]
  - PULMONARY EMBOLISM [None]
